FAERS Safety Report 6425373-X (Version None)
Quarter: 2009Q4

REPORT INFORMATION
  Report Type: 
  Country: None (occurrence: None)
  Receive Date: 20091103
  Receipt Date: 20091026
  Transmission Date: 20100525
  Serious: Yes (Death)
  Sender: FDA-Public Use
  Company Number: B0599805A

PATIENT
  Sex: Female
  Weight: 62 kg

DRUGS (2)
  1. TYKERB [Suspect]
     Indication: BREAST CANCER
     Dosage: 1250MG PER DAY
     Route: 065
     Dates: start: 20090505, end: 20090830
  2. XELODA [Suspect]
     Indication: BREAST CANCER
     Dosage: 2000MGM2 PER DAY
     Route: 065
     Dates: start: 20090505, end: 20090831

REACTIONS (6)
  - CENTRAL NERVOUS SYSTEM LESION [None]
  - CEREBROVASCULAR DISORDER [None]
  - DIZZINESS [None]
  - HEADACHE [None]
  - HEMIPARESIS [None]
  - VENOUS THROMBOSIS LIMB [None]
